FAERS Safety Report 7909553-X (Version None)
Quarter: 2011Q4

REPORT INFORMATION
  Report Type: 
  Country: None (occurrence: None)
  Receive Date: 20111111
  Receipt Date: 20111104
  Transmission Date: 20120403
  Serious: Yes (Hospitalization)
  Sender: FDA-Public Use
  Company Number: US-JNJFOC-20111007442

PATIENT
  Sex: Male

DRUGS (5)
  1. NUCYNTA [Suspect]
     Route: 048
  2. NUCYNTA [Suspect]
     Indication: ANALGESIC THERAPY
     Dosage: ONE TABLET 4 TIMES DAILY
     Route: 048
     Dates: start: 20111001, end: 20111001
  3. NUCYNTA [Suspect]
     Dosage: ONE TABLET 4 TIMES DAILY
     Route: 048
     Dates: start: 20111001, end: 20111001
  4. NUCYNTA [Suspect]
     Indication: PAIN
     Route: 048
  5. ARTHROTEC [Suspect]
     Indication: PAIN
     Route: 048

REACTIONS (1)
  - HEPATIC FAILURE [None]
